FAERS Safety Report 7432186-9 (Version None)
Quarter: 2011Q2

REPORT INFORMATION
  Report Type: 
  Country: None (occurrence: None)
  Receive Date: 20110422
  Receipt Date: 20110413
  Transmission Date: 20111010
  Serious: Yes (Other)
  Sender: FDA-Public Use
  Company Number: FR-JNJFOC-20101104068

PATIENT
  Sex: Female
  Weight: 52 kg

DRUGS (2)
  1. TPN [Concomitant]
     Indication: MEDICAL DIET
     Route: 065
  2. ORTHO EVRA [Suspect]
     Indication: CONTRACEPTION
     Route: 062

REACTIONS (4)
  - PREMATURE RUPTURE OF MEMBRANES [None]
  - DRUG EXPOSURE DURING PREGNANCY [None]
  - PREGNANCY WITH CONTRACEPTIVE PATCH [None]
  - PREMATURE LABOUR [None]
